FAERS Safety Report 12178591 (Version 1)
Quarter: 2016Q1

REPORT INFORMATION
  Report Type: Spontaneous
  Country: US (occurrence: US)
  Receive Date: 20160314
  Receipt Date: 20160314
  Transmission Date: 20160526
  Serious: No
  Sender: FDA-Public Use
  Company Number: US-SA-2016SA015406

PATIENT
  Age: 68 Year
  Sex: Male

DRUGS (6)
  1. SOLOSTAR [Concomitant]
     Active Substance: DEVICE
  2. NPH INSULIN [Concomitant]
     Active Substance: INSULIN BEEF
     Dosage: DOSE:30 UNIT(S)
  3. LANTUS SOLOSTAR [Concomitant]
     Active Substance: INSULIN GLARGINE
  4. TOUJEO [Suspect]
     Active Substance: INSULIN GLARGINE
     Indication: TYPE 1 DIABETES MELLITUS
     Dosage: DOSE:76 UNIT(S)
     Route: 065
     Dates: start: 201512
  5. LANTUS [Concomitant]
     Active Substance: INSULIN GLARGINE
  6. SOLOSTAR [Concomitant]
     Active Substance: DEVICE
     Indication: TYPE 1 DIABETES MELLITUS
     Dates: start: 201512

REACTIONS (1)
  - Blood glucose increased [Unknown]
